FAERS Safety Report 9307037 (Version 1)
Quarter: 2013Q2

REPORT INFORMATION
  Report Type: Report from Study
  Country: JP (occurrence: JP)
  Receive Date: 20130523
  Receipt Date: 20130523
  Transmission Date: 20140414
  Serious: Yes (Death, Hospitalization)
  Sender: FDA-Public Use
  Company Number: JP-BRISTOL-MYERS SQUIBB COMPANY-14021174

PATIENT
  Age: 84 Year
  Sex: Female
  Weight: 35 kg

DRUGS (27)
  1. BARACLUDE [Suspect]
     Indication: CHRONIC HEPATITIS B
     Dosage: 23-AUG-2007 TO 27-OCT-2008, 06-DEC-2009 TO 22-APR-2009.
     Route: 048
     Dates: start: 20070823
  2. GOKUMISIN [Concomitant]
     Indication: CHRONIC HEPATITIS B
     Dosage: UNK-22APR08
     Route: 048
  3. SULTANOL [Concomitant]
     Indication: ASTHMA
     Route: 045
     Dates: end: 20090422
  4. ATARAX [Concomitant]
     Indication: INSOMNIA
     Route: 048
     Dates: start: 20081024, end: 20081026
  5. MOUTHWASH [Concomitant]
     Indication: PROPHYLAXIS
     Route: 048
     Dates: end: 20090422
  6. VOLTAREN [Concomitant]
     Indication: BACK PAIN
     Dosage: 18NOV08 ALSO
     Route: 061
     Dates: start: 20090204, end: 20090422
  7. HALFDIGOXIN [Concomitant]
     Indication: CARDIAC FAILURE CONGESTIVE
     Route: 048
     Dates: end: 20080422
  8. TAKEPRON [Concomitant]
     Indication: GASTROOESOPHAGEAL REFLUX DISEASE
     Route: 048
     Dates: end: 20080422
  9. TAKEPRON [Concomitant]
     Indication: GASTRODUODENAL ULCER
     Route: 048
     Dates: end: 20080422
  10. PREDNISOLONE [Concomitant]
     Indication: CARDIAC FAILURE CONGESTIVE
     Route: 048
     Dates: start: 20080422
  11. SPIRONOLACTONE [Concomitant]
     Indication: CARDIAC FAILURE CONGESTIVE
     Route: 048
     Dates: start: 20080422
  12. MUCOSTA [Concomitant]
     Indication: GASTRODUODENAL ULCER
     Route: 048
     Dates: start: 20080422
  13. MUCOSTA [Concomitant]
     Indication: GASTROOESOPHAGEAL REFLUX DISEASE
     Route: 048
     Dates: start: 20080422
  14. MUCOTRON [Concomitant]
     Indication: ASTHMA
     Route: 048
     Dates: start: 20080422
  15. BETAHISTINE MESYLATE [Concomitant]
     Indication: ASTHMA
     Route: 048
     Dates: start: 20080422
  16. MYSLEE [Concomitant]
     Indication: INSOMNIA
     Route: 048
     Dates: start: 20090303
  17. HOKUNALIN [Concomitant]
     Indication: ASTHMA
     Route: 061
     Dates: start: 20090421
  18. KIPRESS [Concomitant]
     Indication: RHINITIS ALLERGIC
     Route: 048
     Dates: start: 20090421
  19. THEOPHYLLINE [Concomitant]
     Indication: ASTHMA
     Route: 048
     Dates: start: 20090421
  20. LASIX [Concomitant]
     Indication: CARDIAC FAILURE CONGESTIVE
     Route: 048
     Dates: start: 20090421
  21. BLOPRESS [Concomitant]
     Indication: HYPERTENSION
     Route: 048
     Dates: start: 20090421
  22. VOGLIBOSE [Concomitant]
     Indication: DIABETES MELLITUS
     Route: 048
     Dates: start: 20090421
  23. MOHRUS [Concomitant]
     Indication: BACK PAIN
     Dates: start: 20090421
  24. MOHRUS [Concomitant]
     Indication: PERIARTHRITIS
     Dates: start: 20090421
  25. TRAVELMIN [Concomitant]
     Indication: DIZZINESS
     Route: 048
     Dates: start: 20090421
  26. NITOROL [Concomitant]
     Indication: ANGINA PECTORIS
     Route: 048
     Dates: start: 20090421
  27. FRANDOL TAPE S [Concomitant]
     Indication: ANGINA PECTORIS
     Route: 061
     Dates: start: 20090421

REACTIONS (10)
  - Multi-organ failure [Fatal]
  - Diarrhoea [Recovered/Resolved]
  - Vomiting [Recovered/Resolved]
  - Bacterial infection [Recovered/Resolved]
  - Altered state of consciousness [Recovering/Resolving]
  - Back pain [Recovering/Resolving]
  - Myocardial infarction [Recovering/Resolving]
  - Pancreatitis acute [Not Recovered/Not Resolved]
  - Renal failure [Not Recovered/Not Resolved]
  - Infection [Not Recovered/Not Resolved]
